FAERS Safety Report 7314458-1 (Version None)
Quarter: 2011Q1

REPORT INFORMATION
  Report Type: 
  Country: None (occurrence: None)
  Receive Date: 20110225
  Receipt Date: 20100830
  Transmission Date: 20110831
  Serious: No
  Sender: FDA-Public Use
  Company Number: US-MYLANLABS-2010S1016196

PATIENT
  Age: 16 Year
  Sex: Male

DRUGS (3)
  1. MULTIVITAMIN [Concomitant]
  2. AMNESTEEM [Suspect]
     Indication: ACNE
     Route: 048
     Dates: start: 20100423, end: 20100816
  3. ZYRTEC [Concomitant]

REACTIONS (3)
  - ARTHRALGIA [None]
  - MYALGIA [None]
  - BACK PAIN [None]
